FAERS Safety Report 17247151 (Version 1)
Quarter: 2019Q4

REPORT INFORMATION
  Report Type: Spontaneous
  Country: US (occurrence: US)
  Receive Date: 20191213
  Receipt Date: 20191213
  Transmission Date: 20200122
  Serious: Yes (Other)
  Sender: FDA-Public Use
  Company Number: None

PATIENT
  Age: 62 Year
  Sex: Female

DRUGS (2)
  1. TIZANIDINE 4MG [Suspect]
     Active Substance: TIZANIDINE
     Dates: end: 2012
  2. TIZANIDINE 4MG [Suspect]
     Active Substance: TIZANIDINE
     Dates: start: 2005

REACTIONS (2)
  - Product substitution issue [None]
  - Rash [None]

NARRATIVE: CASE EVENT DATE: 2005
